FAERS Safety Report 9160346 (Version 1)
Quarter: 2013Q1

REPORT INFORMATION
  Report Type: Spontaneous
  Country: AR (occurrence: AR)
  Receive Date: 20130313
  Receipt Date: 20130313
  Transmission Date: 20140127
  Serious: Yes (Death, Hospitalization, Other)
  Sender: FDA-Public Use
  Company Number: AR-B.I. PHARMACEUTICALS,INC./RIDGEFIELD-2013-BI-06409GD

PATIENT
  Sex: Male

DRUGS (6)
  1. VIRAMUNE [Suspect]
     Indication: MATERNAL EXPOSURE DURING PREGNANCY
     Route: 064
  2. VIRAMUNE [Suspect]
     Indication: HIV INFECTION
  3. LAMIVUDINE [Suspect]
     Indication: MATERNAL EXPOSURE DURING PREGNANCY
     Route: 064
  4. LAMIVUDINE [Suspect]
     Indication: HIV INFECTION
  5. ZIDOVUDINE [Suspect]
     Indication: MATERNAL EXPOSURE DURING PREGNANCY
     Route: 064
  6. ZIDOVUDINE [Suspect]
     Indication: HIV INFECTION

REACTIONS (9)
  - Klebsiella sepsis [Fatal]
  - Multi-organ failure [Unknown]
  - Pyrexia [Unknown]
  - Pneumonia [Unknown]
  - Candida infection [Unknown]
  - Anaemia [Unknown]
  - Hepatic failure [Unknown]
  - Cytomegalovirus infection [Unknown]
  - Hepatitis [Unknown]
